FAERS Safety Report 20181877 (Version 1)
Quarter: 2021Q4

REPORT INFORMATION
  Report Type: Spontaneous
  Country: US (occurrence: US)
  Receive Date: 20211214
  Receipt Date: 20211214
  Transmission Date: 20220303
  Serious: Yes (Hospitalization, Other)
  Sender: FDA-Public Use
  Company Number: US-MLMSERVICE-20211126-3240465-1

PATIENT
  Age: 53 Year
  Sex: Female

DRUGS (1)
  1. MESALAMINE [Suspect]
     Active Substance: MESALAMINE
     Indication: Colitis ulcerative

REACTIONS (10)
  - Cardiomyopathy [Recovered/Resolved]
  - Vomiting [Recovered/Resolved]
  - Pericardial effusion [Recovered/Resolved]
  - Myocarditis [Recovered/Resolved]
  - Sinus tachycardia [Recovered/Resolved]
  - Left ventricular dysfunction [Recovered/Resolved]
  - Hypotension [Recovered/Resolved]
  - Diarrhoea [Recovered/Resolved]
  - Ventricular hypokinesia [Recovered/Resolved]
  - Cardiomegaly [Recovered/Resolved]
